FAERS Safety Report 9776534 (Version 1)
Quarter: 2013Q4

REPORT INFORMATION
  Report Type: Spontaneous
  Country: FR (occurrence: FR)
  Receive Date: 20131220
  Receipt Date: 20131220
  Transmission Date: 20140711
  Serious: Yes (Hospitalization)
  Sender: FDA-Public Use
  Company Number: FR-FRI-1000052379

PATIENT
  Age: 62 Year
  Sex: Female

DRUGS (6)
  1. MILNACIPRAN [Suspect]
     Dosage: 150 MG
     Route: 048
     Dates: start: 20131010, end: 20131104
  2. EUTHYRAL [Concomitant]
  3. SANMIGRAN [Concomitant]
     Dosage: 0.5 MG
  4. SEREVENT [Concomitant]
     Dosage: 25 MCG
  5. FLIXOTIDE [Concomitant]
     Dosage: 250 MCG
  6. THERALENE [Concomitant]
     Route: 048

REACTIONS (1)
  - Mania [Not Recovered/Not Resolved]
